FAERS Safety Report 16237642 (Version 7)
Quarter: 2020Q1

REPORT INFORMATION
  Report Type: Spontaneous
  Country: US (occurrence: US)
  Receive Date: 20190425
  Receipt Date: 20200205
  Transmission Date: 20200409
  Serious: Yes (Hospitalization, Other)
  Sender: FDA-Public Use
  Company Number: US-HIKMA PHARMACEUTICALS USA INC.-US-H14001-19-02661

PATIENT
  Age: 76 Year
  Sex: Female
  Weight: 60.8 kg

DRUGS (22)
  1. FIRDAPSE [Suspect]
     Active Substance: AMIFAMPRIDINE
     Indication: MYASTHENIC SYNDROME
     Route: 048
     Dates: start: 20190308, end: 20190422
  2. VESICARE [Concomitant]
     Active Substance: SOLIFENACIN SUCCINATE
     Indication: PRODUCT USED FOR UNKNOWN INDICATION
     Route: 065
  3. PREDNISONE. [Suspect]
     Active Substance: PREDNISONE
     Indication: CROHN^S DISEASE
     Route: 065
  4. LORATADINE. [Concomitant]
     Active Substance: LORATADINE
     Indication: PRODUCT USED FOR UNKNOWN INDICATION
     Route: 065
  5. GABAPENTIN. [Concomitant]
     Active Substance: GABAPENTIN
     Route: 065
     Dates: start: 20191218
  6. FIRDAPSE [Suspect]
     Active Substance: AMIFAMPRIDINE
     Dosage: 15 MG IN THE MORNING, 10 MG IN THE AFTERNOON
     Route: 048
     Dates: start: 20190422
  7. FIRDAPSE [Suspect]
     Active Substance: AMIFAMPRIDINE
     Dosage: 10 MG ONCE DAILY AND 15 MG ONCE DAILY
     Route: 048
     Dates: start: 20190422
  8. MELATONIN [Concomitant]
     Active Substance: MELATONIN
     Indication: PRODUCT USED FOR UNKNOWN INDICATION
     Route: 065
  9. PRAMIPEXOLE. [Concomitant]
     Active Substance: PRAMIPEXOLE
     Indication: PRODUCT USED FOR UNKNOWN INDICATION
     Route: 065
  10. FIORICET [Concomitant]
     Active Substance: ACETAMINOPHEN\BUTALBITAL\CAFFEINE
     Indication: MIGRAINE
     Dosage: 50-300-40 MG
     Route: 065
  11. PAROXETINE. [Concomitant]
     Active Substance: PAROXETINE
     Indication: PRODUCT USED FOR UNKNOWN INDICATION
     Route: 065
  12. XANAX [Concomitant]
     Active Substance: ALPRAZOLAM
     Indication: PRODUCT USED FOR UNKNOWN INDICATION
     Route: 065
  13. PREDNISONE. [Suspect]
     Active Substance: PREDNISONE
     Indication: AUTOIMMUNE DISORDER
     Route: 065
  14. IMMUNOGLOBULIN (IMMUNOGLOBULIN HUMAN NORMAL) [Suspect]
     Active Substance: HUMAN IMMUNOGLOBULIN G
     Indication: MIGRAINE
     Route: 042
  15. FLEXERIL [Suspect]
     Active Substance: CYCLOBENZAPRINE HYDROCHLORIDE
     Indication: NECK PAIN
     Route: 065
  16. LOSARTAN. [Concomitant]
     Active Substance: LOSARTAN
     Indication: HYPERTENSION
     Route: 065
  17. FIRDAPSE [Suspect]
     Active Substance: AMIFAMPRIDINE
     Dosage: 20 MG 2X/DAY (MORNING AND AFTERNOON) AND WAS SUPPOSED TO TAKE 1.5 TABLETS (15 MG) IN THE MORNING
     Route: 048
     Dates: start: 2019
  18. GABAPENTIN. [Concomitant]
     Active Substance: GABAPENTIN
     Indication: PRODUCT USED FOR UNKNOWN INDICATION
     Route: 065
     Dates: end: 20191218
  19. FIRDAPSE [Suspect]
     Active Substance: AMIFAMPRIDINE
     Route: 048
  20. LEVOTHYROXINE. [Concomitant]
     Active Substance: LEVOTHYROXINE
     Indication: PRODUCT USED FOR UNKNOWN INDICATION
     Route: 065
  21. OMEPRAZOLE. [Concomitant]
     Active Substance: OMEPRAZOLE
     Indication: PRODUCT USED FOR UNKNOWN INDICATION
     Route: 065
  22. PAXIL [Concomitant]
     Active Substance: PAROXETINE HYDROCHLORIDE
     Indication: PRODUCT USED FOR UNKNOWN INDICATION
     Route: 065

REACTIONS (39)
  - Adrenal insufficiency [Unknown]
  - Arthralgia [Recovered/Resolved]
  - Abdominal pain [Unknown]
  - Neck pain [Not Recovered/Not Resolved]
  - Wound infection [Unknown]
  - Chest pain [Recovered/Resolved]
  - Haemoglobin decreased [Recovering/Resolving]
  - Muscle twitching [Not Recovered/Not Resolved]
  - Migraine [Not Recovered/Not Resolved]
  - Unevaluable event [Unknown]
  - Scoliosis [Unknown]
  - Restless legs syndrome [Not Recovered/Not Resolved]
  - Muscle twitching [Not Recovered/Not Resolved]
  - Musculoskeletal pain [Recovering/Resolving]
  - Pain in extremity [Not Recovered/Not Resolved]
  - Insomnia [Not Recovered/Not Resolved]
  - Condition aggravated [Recovering/Resolving]
  - Discomfort [Unknown]
  - Malaise [Unknown]
  - Myalgia [Unknown]
  - Cellulitis [Recovering/Resolving]
  - Osteoarthritis [Unknown]
  - Feeling cold [Recovered/Resolved]
  - Feeling abnormal [Unknown]
  - Blood pressure fluctuation [Unknown]
  - Diplopia [Recovering/Resolving]
  - Intentional product use issue [Unknown]
  - Back pain [Not Recovered/Not Resolved]
  - Gastric ulcer haemorrhage [Recovering/Resolving]
  - Visual impairment [Recovering/Resolving]
  - Eye movement disorder [Not Recovered/Not Resolved]
  - Drug ineffective [Not Recovered/Not Resolved]
  - Dyspnoea [Not Recovered/Not Resolved]
  - Hypokinesia [Unknown]
  - Fall [Unknown]
  - Torticollis [Not Recovered/Not Resolved]
  - Skin atrophy [Unknown]
  - Wound haemorrhage [Unknown]
  - Vision blurred [Recovering/Resolving]

NARRATIVE: CASE EVENT DATE: 201811
